APPROVED DRUG PRODUCT: STERILE WATER FOR IRRIGATION
Active Ingredient: STERILE WATER FOR IRRIGATION
Strength: 100%
Dosage Form/Route: LIQUID;IRRIGATION
Application: A216123 | Product #001 | TE Code: AT
Applicant: FRESENIUS KABI USA LLC
Approved: Aug 12, 2024 | RLD: No | RS: No | Type: RX